FAERS Safety Report 17031059 (Version 1)
Quarter: 2019Q4

REPORT INFORMATION
  Report Type: Spontaneous
  Country: US (occurrence: US)
  Receive Date: 20191114
  Receipt Date: 20191114
  Transmission Date: 20200122
  Serious: Yes (Other)
  Sender: FDA-Public Use
  Company Number: US-PFIZER INC-2019491928

PATIENT
  Age: 74 Year
  Sex: Female
  Weight: 56.69 kg

DRUGS (3)
  1. ELETRIPTAN HBR [Suspect]
     Active Substance: ELETRIPTAN HYDROBROMIDE
     Indication: MIGRAINE
     Dosage: 40 MG, 1X/DAY AS NEEDED
     Route: 048
     Dates: start: 201906
  2. RETIN-A [Concomitant]
     Active Substance: TRETINOIN
     Indication: ACNE
  3. LATISSE [Concomitant]
     Active Substance: BIMATOPROST
     Indication: HAIR GROWTH ABNORMAL

REACTIONS (6)
  - Weight increased [Unknown]
  - Haemorrhage [Unknown]
  - Drug ineffective [Not Recovered/Not Resolved]
  - Feeling abnormal [Unknown]
  - Therapeutic response changed [Not Recovered/Not Resolved]
  - Malaise [Unknown]

NARRATIVE: CASE EVENT DATE: 2019
